FAERS Safety Report 20570119 (Version 1)
Quarter: 2022Q1

REPORT INFORMATION
  Report Type: Spontaneous
  Country: US (occurrence: US)
  Receive Date: 20220309
  Receipt Date: 20220309
  Transmission Date: 20220423
  Serious: Yes (Death, Disabling)
  Sender: FDA-Public Use
  Company Number: US-ORGANON-O2203USA000796

PATIENT

DRUGS (1)
  1. SINGULAIR [Suspect]
     Active Substance: MONTELUKAST SODIUM
     Dosage: UNK
     Route: 048
     Dates: start: 1998, end: 2013

REACTIONS (3)
  - Neuropsychiatric symptoms [Fatal]
  - Aggression [Fatal]
  - Depression [Fatal]
